FAERS Safety Report 6133729-8 (Version None)
Quarter: 2009Q1

REPORT INFORMATION
  Report Type: 
  Country: None (occurrence: None)
  Receive Date: 20090326
  Receipt Date: 20090318
  Transmission Date: 20090719
  Serious: Yes (Other)
  Sender: FDA-Public Use
  Company Number: B0566763A

PATIENT
  Age: 40 Year
  Sex: Male

DRUGS (7)
  1. VOXRA [Suspect]
     Indication: DEPRESSION
     Dosage: 600MG PER DAY
     Route: 048
     Dates: start: 20090224, end: 20090224
  2. UNKNOWN DRUG [Suspect]
     Indication: HEADACHE
     Dosage: 400MG PER DAY
     Route: 048
     Dates: start: 20090224, end: 20090224
  3. TRAMADOL HCL [Suspect]
     Indication: HEADACHE
     Dosage: 200MG PER DAY
     Route: 065
     Dates: start: 20090201
  4. ZOMIG [Concomitant]
     Indication: MIGRAINE
     Route: 065
  5. KESTINE [Concomitant]
     Route: 065
  6. ACETAMINOPHEN W/ CODEINE [Concomitant]
     Route: 065
  7. UNKNOWN DRUG [Concomitant]
     Route: 065

REACTIONS (8)
  - ACCIDENTAL OVERDOSE [None]
  - AMNESIA [None]
  - BODY TEMPERATURE DECREASED [None]
  - CONTUSION [None]
  - CONVULSION [None]
  - FEELING ABNORMAL [None]
  - SCRATCH [None]
  - SOMNOLENCE [None]
